FAERS Safety Report 7118926-7 (Version None)
Quarter: 2010Q4

REPORT INFORMATION
  Report Type: 
  Country: None (occurrence: None)
  Receive Date: 20101123
  Receipt Date: 20101118
  Transmission Date: 20110411
  Serious: Yes (Hospitalization, Other)
  Sender: FDA-Public Use
  Company Number: PL-ROXANE LABORATORIES, INC.-2010-RO-01520RO

PATIENT
  Age: 27 Year
  Sex: Male

DRUGS (1)
  1. FUROSEMIDE [Suspect]

REACTIONS (13)
  - ALANINE AMINOTRANSFERASE INCREASED [None]
  - ALCOHOL USE [None]
  - ASPARTATE AMINOTRANSFERASE INCREASED [None]
  - BLOOD BILIRUBIN INCREASED [None]
  - DEHYDRATION [None]
  - DRUG ABUSE [None]
  - FLUID RETENTION [None]
  - HYPERTENSION [None]
  - LIVER INJURY [None]
  - OLIGURIA [None]
  - PSEUDO-BARTTER SYNDROME [None]
  - RENAL FAILURE ACUTE [None]
  - VOMITING [None]
